FAERS Safety Report 22882067 (Version 4)
Quarter: 2023Q4

REPORT INFORMATION
  Report Type: Report from Study
  Country: US (occurrence: US)
  Receive Date: 20230830
  Receipt Date: 20231030
  Transmission Date: 20240110
  Serious: Yes (Hospitalization, Other)
  Sender: FDA-Public Use
  Company Number: US-ABBVIE-5386030

PATIENT
  Age: 89 Year
  Sex: Female

DRUGS (1)
  1. IMBRUVICA [Suspect]
     Active Substance: IBRUTINIB
     Indication: Waldenstrom^s macroglobulinaemia
     Route: 048
     Dates: start: 201906

REACTIONS (11)
  - Red blood cell count decreased [Unknown]
  - Pericardial effusion [Unknown]
  - Upper limb fracture [Unknown]
  - Hip fracture [Unknown]
  - Pneumonia [Unknown]
  - Hypertension [Unknown]
  - Femur fracture [Unknown]
  - Urinary tract infection [Unknown]
  - Pain [Unknown]
  - Cognitive disorder [Unknown]
  - Fall [Unknown]

NARRATIVE: CASE EVENT DATE: 20230701
